FAERS Safety Report 5797844-0 (Version None)
Quarter: 2008Q2

REPORT INFORMATION
  Report Type: 
  Country: None (occurrence: None)
  Receive Date: 20080630
  Receipt Date: 20080620
  Transmission Date: 20081010
  Serious: Yes (Hospitalization)
  Sender: FDA-Public Use
  Company Number: FRP08000638

PATIENT
  Age: 31 Year
  Sex: Male

DRUGS (8)
  1. ACTONEL [Suspect]
  2. PROGRAF [Suspect]
  3. CORTANCYL(PREDNISONE) [Suspect]
  4. FLAGYL [Suspect]
     Indication: DRUG USE FOR UNKNOWN INDICATION
  5. ZITHROMAX [Suspect]
     Indication: DRUG USE FOR UNKNOWN INDICATION
  6. BACTRIM /00086101/(TRIMETHOPRIM, SULFAMETHOXAZOLE) [Suspect]
     Indication: DRUG USE FOR UNKNOWN INDICATION
  7. PAROXETINE HCL [Suspect]
     Indication: DRUG USE FOR UNKNOWN INDICATION
  8. MOPRAL /--661201/(OMEPRAZOLE) [Suspect]
     Indication: DRUG USE FOR UNKNOWN INDICATION

REACTIONS (2)
  - SCOTOMA [None]
  - VISUAL ACUITY REDUCED [None]
